FAERS Safety Report 8232795-3 (Version None)
Quarter: 2012Q1

REPORT INFORMATION
  Report Type: 
  Country: None (occurrence: None)
  Receive Date: 20120323
  Receipt Date: 20120320
  Transmission Date: 20120608
  Serious: Yes (Hospitalization, Other)
  Sender: FDA-Public Use
  Company Number: BR-ABBOTT-12P-020-0917359-00

PATIENT
  Sex: Female
  Weight: 76 kg

DRUGS (5)
  1. HUMIRA [Suspect]
     Route: 058
     Dates: start: 20120315
  2. UNSPECIFIED DRUG (IDRIAO ) [Concomitant]
     Indication: DIURETIC THERAPY
     Dosage: 1.5 PER DAY (UNSPECIFIED UNIT)
     Route: 048
  3. UNSPECIFIED DRUG (IDRIAO ) [Concomitant]
     Indication: ERYSIPELAS
  4. HUMIRA [Suspect]
     Indication: RHEUMATOID ARTHRITIS
     Route: 058
     Dates: start: 20090101, end: 20111101
  5. ALPRAZOLAM [Concomitant]
     Indication: ANXIETY
     Route: 048

REACTIONS (7)
  - ERYSIPELAS [None]
  - UPPER LIMB FRACTURE [None]
  - FALL [None]
  - THROMBOSIS [None]
  - PULMONARY EMBOLISM [None]
  - PNEUMONIA [None]
  - BACK PAIN [None]
